FAERS Safety Report 12573722 (Version 1)
Quarter: 2016Q3

REPORT INFORMATION
  Report Type: Spontaneous
  Country: US (occurrence: None)
  Receive Date: 20160719
  Receipt Date: 20160719
  Transmission Date: 20161109
  Serious: Yes (Death, Hospitalization)
  Sender: FDA-Public Use
  Company Number: None

PATIENT
  Age: 6 Year
  Sex: Male
  Weight: 13.2 kg

DRUGS (5)
  1. VINCRISTINE SULFATE. [Suspect]
     Active Substance: VINCRISTINE SULFATE
     Dates: end: 20160707
  2. DOXORUBICIN HYDROCHLORIDE. [Suspect]
     Active Substance: DOXORUBICIN HYDROCHLORIDE
     Dates: end: 20160707
  3. METHOTREXATE. [Suspect]
     Active Substance: METHOTREXATE
     Dates: end: 20160623
  4. ONCASPAR [Suspect]
     Active Substance: PEGASPARGASE
     Dates: end: 20160627
  5. DEXAMETHASONE. [Suspect]
     Active Substance: DEXAMETHASONE
     Dates: end: 20160713

REACTIONS (15)
  - Neutropenia [None]
  - Fluid overload [None]
  - Human rhinovirus test positive [None]
  - Weight increased [None]
  - Blood bilirubin increased [None]
  - Pyrexia [None]
  - Rubulavirus test positive [None]
  - Blood sodium increased [None]
  - Heart sounds abnormal [None]
  - Septic shock [None]
  - Blood fibrinogen decreased [None]
  - Coagulopathy [None]
  - Respiratory distress [None]
  - Prothrombin time prolonged [None]
  - Pulse absent [None]

NARRATIVE: CASE EVENT DATE: 20160715
